FAERS Safety Report 24223742 (Version 1)
Quarter: 2024Q3

REPORT INFORMATION
  Report Type: Spontaneous
  Country: US (occurrence: None)
  Receive Date: 20240816
  Receipt Date: 20240816
  Transmission Date: 20241017
  Serious: Yes (Life-Threatening)
  Sender: Public
  Company Number: None

PATIENT
  Age: 9 Year
  Sex: Female
  Weight: 20.25 kg

DRUGS (1)
  1. LEVETIRACETAM [Suspect]
     Active Substance: LEVETIRACETAM
     Indication: Epilepsy
     Dosage: FREQUENCY : EVERY 12 HOURS?
     Route: 048

REACTIONS (3)
  - Suicidal behaviour [None]
  - Aggression [None]
  - Intentional self-injury [None]

NARRATIVE: CASE EVENT DATE: 20240810
